FAERS Safety Report 10424618 (Version 2)
Quarter: 2014Q3

REPORT INFORMATION
  Report Type: Spontaneous
  Country: US (occurrence: US)
  Receive Date: 20140902
  Receipt Date: 20140902
  Transmission Date: 20150326
  Serious: Yes (Hospitalization, Other)
  Sender: FDA-Public Use
  Company Number: US-ACTELION-A-US2014-96689

PATIENT
  Age: 60 Year
  Sex: Female

DRUGS (2)
  1. TRACLEER [Suspect]
     Active Substance: BOSENTAN\BOSENTAN MONOHYDRATE
     Indication: PULMONARY ARTERIAL HYPERTENSION
     Dosage: UNK
     Route: 048
  2. ADCIRCA [Concomitant]
     Active Substance: TADALAFIL

REACTIONS (12)
  - Gastrointestinal disorder [Recovering/Resolving]
  - Muscular weakness [Unknown]
  - Pain [Unknown]
  - Vomiting [Unknown]
  - Urinary tract infection [Recovering/Resolving]
  - Back pain [Recovering/Resolving]
  - Renal disorder [Unknown]
  - Haematemesis [Unknown]
  - Nausea [Unknown]
  - Gastric haemorrhage [Unknown]
  - Gastrooesophageal reflux disease [Recovering/Resolving]
  - Malaise [Unknown]
